FAERS Safety Report 6295157-4 (Version None)
Quarter: 2009Q3

REPORT INFORMATION
  Report Type: 
  Country: None (occurrence: None)
  Receive Date: 20090803
  Receipt Date: 20090722
  Transmission Date: 20100115
  Serious: Yes (Other)
  Sender: FDA-Public Use
  Company Number: IE-PFIZER INC-2009244505

PATIENT
  Age: 55 Year

DRUGS (7)
  1. CHAMPIX [Suspect]
  2. ASPIRIN [Concomitant]
  3. PLAVIX [Concomitant]
  4. EMCOR [Concomitant]
  5. LIPITOR [Concomitant]
  6. TRITACE [Concomitant]
  7. XANAX [Concomitant]

REACTIONS (1)
  - SKIN EXFOLIATION [None]
